FAERS Safety Report 7253464-2 (Version None)
Quarter: 2011Q1

REPORT INFORMATION
  Report Type: 
  Country: None (occurrence: None)
  Receive Date: 20110129
  Receipt Date: 20100217
  Transmission Date: 20110831
  Serious: No
  Sender: FDA-Public Use
  Company Number: US-ABBOTT-10P-163-0626776-00

PATIENT
  Sex: Female
  Weight: 116.22 kg

DRUGS (3)
  1. HUMIRA [Suspect]
     Indication: PSORIASIS
     Dates: start: 20100121
  2. NORVASC [Concomitant]
     Indication: BLOOD PRESSURE
  3. HYDROCODONE [Concomitant]
     Indication: ARTHRALGIA

REACTIONS (3)
  - WEIGHT INCREASED [None]
  - COUGH [None]
  - GASTROOESOPHAGEAL REFLUX DISEASE [None]
